FAERS Safety Report 8919103 (Version 1)
Quarter: 2012Q4

REPORT INFORMATION
  Report Type: Report from Study
  Country: US (occurrence: US)
  Receive Date: 20121121
  Receipt Date: 20121121
  Transmission Date: 20130627
  Serious: Yes (Hospitalization)
  Sender: FDA-Public Use
  Company Number: US-ASTELLAS-2011US005045

PATIENT
  Sex: Female

DRUGS (2)
  1. ERLOTINIB TABLET [Suspect]
     Indication: LUNG CARCINOMA CELL TYPE UNSPECIFIED STAGE 0
     Dosage: 150 mg, UID/QD
     Route: 048
     Dates: start: 20110429
  2. ERLOTINIB TABLET [Suspect]
     Dosage: 100 mg, UID/QD
     Route: 048
     Dates: start: 20110429

REACTIONS (7)
  - Small intestinal obstruction [Unknown]
  - Alopecia [Unknown]
  - Constipation [Unknown]
  - Nail growth abnormal [Unknown]
  - Hair growth abnormal [Unknown]
  - Onychoclasis [Unknown]
  - Abdominal pain [Unknown]
